FAERS Safety Report 8182132-8 (Version None)
Quarter: 2012Q1

REPORT INFORMATION
  Report Type: 
  Country: None (occurrence: None)
  Receive Date: 20120302
  Receipt Date: 20120123
  Transmission Date: 20120608
  Serious: Yes (Death, Hospitalization)
  Sender: FDA-Public Use
  Company Number: PHHY2012IL004396

PATIENT
  Age: 73 Year
  Sex: Male

DRUGS (1)
  1. AFINITOR [Suspect]
     Indication: RENAL CELL CARCINOMA
     Dosage: 10 MG, QD
     Route: 048
     Dates: start: 20110922

REACTIONS (12)
  - CYANOSIS CENTRAL [None]
  - RENAL FAILURE [None]
  - PYREXIA [None]
  - CARDIOMYOPATHY [None]
  - CARDIAC FAILURE CONGESTIVE [None]
  - GENERAL PHYSICAL HEALTH DETERIORATION [None]
  - DYSPNOEA [None]
  - INFECTION [None]
  - BLOOD CREATININE INCREASED [None]
  - CYANOSIS [None]
  - ASPIRATION [None]
  - BLOOD PRESSURE SYSTOLIC INCREASED [None]
